FAERS Safety Report 24957586 (Version 1)
Quarter: 2025Q1

REPORT INFORMATION
  Report Type: Report from Study
  Country: US (occurrence: US)
  Receive Date: 20250212
  Receipt Date: 20250212
  Transmission Date: 20250408
  Serious: Yes (Hospitalization, Other)
  Sender: ABBVIE
  Company Number: US-ABBVIE-5969476

PATIENT
  Age: 66 Year
  Sex: Female
  Weight: 46.72 kg

DRUGS (7)
  1. VENCLEXTA [Suspect]
     Active Substance: VENETOCLAX
     Indication: 5q minus syndrome
     Dosage: DAY 2?TWO TABLETS
     Route: 048
     Dates: start: 20240925, end: 20240925
  2. VENCLEXTA [Suspect]
     Active Substance: VENETOCLAX
     Indication: 5q minus syndrome
     Dosage: DAY 1
     Route: 048
     Dates: start: 20240924, end: 20240924
  3. VENCLEXTA [Suspect]
     Active Substance: VENETOCLAX
     Indication: 5q minus syndrome
     Dosage: 4 TABLETS ON DAY THREE AND BEYOND FOR TOTAL 14 DAYS OF EACH 28 DAYS CYCLE.
     Route: 048
     Dates: start: 20240926
  4. VENCLEXTA [Suspect]
     Active Substance: VENETOCLAX
     Indication: 5q minus syndrome
     Route: 048
     Dates: start: 20241001
  5. VENCLEXTA [Suspect]
     Active Substance: VENETOCLAX
     Indication: 5q minus syndrome
     Route: 048
  6. VIDAZA [Concomitant]
     Active Substance: AZACITIDINE
     Indication: Myelodysplastic syndrome
  7. DARATUMUMAB [Concomitant]
     Active Substance: DARATUMUMAB
     Indication: Product used for unknown indication

REACTIONS (2)
  - Haemoglobin decreased [Unknown]
  - Off label use [Unknown]

NARRATIVE: CASE EVENT DATE: 20240901
